FAERS Safety Report 6220380-4 (Version None)
Quarter: 2009Q2

REPORT INFORMATION
  Report Type: 
  Country: None (occurrence: None)
  Receive Date: 20090610
  Receipt Date: 20090602
  Transmission Date: 20091009
  Serious: Yes (Other)
  Sender: FDA-Public Use
  Company Number: US-RANBAXY-2009US-24599

PATIENT

DRUGS (1)
  1. ISOTRETINOIN [Suspect]
     Indication: PINEALOBLASTOMA
     Dosage: 30 MG, UNK
     Route: 048

REACTIONS (3)
  - BRAIN NEOPLASM [None]
  - OFF LABEL USE [None]
  - THERAPY CESSATION [None]
